FAERS Safety Report 11849737 (Version 1)
Quarter: 2015Q4

REPORT INFORMATION
  Report Type: Spontaneous
  Country: US (occurrence: None)
  Receive Date: 20151217
  Receipt Date: 20151217
  Transmission Date: 20160305
  Serious: No
  Sender: FDA-Public Use
  Company Number: None

PATIENT
  Sex: Female

DRUGS (1)
  1. NITROFURANTOIN 100MG ALVOGEN [Suspect]
     Active Substance: NITROFURANTOIN
     Dosage: 1 PILL
     Route: 048

REACTIONS (6)
  - Anxiety [None]
  - Dyspnoea [None]
  - Pruritus [None]
  - Rash [None]
  - Muscle twitching [None]
  - Hypersensitivity [None]

NARRATIVE: CASE EVENT DATE: 20151211
